FAERS Safety Report 16881925 (Version 1)
Quarter: 2019Q4

REPORT INFORMATION
  Report Type: Spontaneous
  Country: CA (occurrence: CA)
  Receive Date: 20191003
  Receipt Date: 20191003
  Transmission Date: 20200122
  Serious: Yes (Life-Threatening)
  Sender: FDA-Public Use
  Company Number: CA-TEVA-2019-CA-1116771

PATIENT
  Age: 66 Year
  Sex: Female
  Weight: 54 kg

DRUGS (19)
  1. SODIUM VALPROATE [Suspect]
     Active Substance: VALPROATE SODIUM
     Indication: DEPRESSION
     Route: 065
  2. SODIUM VALPROATE [Interacting]
     Active Substance: VALPROATE SODIUM
     Route: 065
  3. VALPROATE SEMISODIUM [Interacting]
     Active Substance: DIVALPROEX SODIUM
     Route: 065
  4. VALPROATE SEMISODIUM [Interacting]
     Active Substance: DIVALPROEX SODIUM
     Route: 065
  5. RISPERDAL [Interacting]
     Active Substance: RISPERIDONE
     Indication: DEPRESSION
     Route: 065
  6. RISPERDAL [Interacting]
     Active Substance: RISPERIDONE
     Route: 065
  7. RISPERDAL [Interacting]
     Active Substance: RISPERIDONE
     Indication: ANXIETY
     Route: 065
  8. EPIVAL [Interacting]
     Active Substance: DIVALPROEX SODIUM
     Indication: DEPRESSION
     Route: 065
  9. EPIVAL [Interacting]
     Active Substance: DIVALPROEX SODIUM
     Indication: ANXIETY
     Route: 065
  10. EPIVAL [Interacting]
     Active Substance: DIVALPROEX SODIUM
     Route: 065
  11. VALPROATE SEMISODIUM [Interacting]
     Active Substance: DIVALPROEX SODIUM
     Indication: ANXIETY
     Route: 065
  12. RISPERDAL [Interacting]
     Active Substance: RISPERIDONE
     Route: 065
  13. SODIUM VALPROATE [Interacting]
     Active Substance: VALPROATE SODIUM
     Indication: ANXIETY
     Route: 065
  14. SODIUM VALPROATE [Interacting]
     Active Substance: VALPROATE SODIUM
     Route: 065
  15. ABILIFY [Interacting]
     Active Substance: ARIPIPRAZOLE
     Indication: DEPRESSION
     Route: 065
  16. ABILIFY [Interacting]
     Active Substance: ARIPIPRAZOLE
     Indication: ANXIETY
     Route: 065
  17. CITALOPRAM HYDROBROMIDE. [Interacting]
     Active Substance: CITALOPRAM HYDROBROMIDE
     Indication: PRODUCT USED FOR UNKNOWN INDICATION
     Route: 065
  18. VALPROATE SEMISODIUM [Interacting]
     Active Substance: DIVALPROEX SODIUM
     Indication: DEPRESSION
     Route: 065
  19. EPIVAL [Interacting]
     Active Substance: DIVALPROEX SODIUM
     Route: 065

REACTIONS (6)
  - Weight increased [Unknown]
  - Product use in unapproved indication [Unknown]
  - Alopecia [Unknown]
  - Off label use [Unknown]
  - Drug interaction [Unknown]
  - Hypersomnia [Unknown]
